FAERS Safety Report 7926473-5 (Version None)
Quarter: 2011Q4

REPORT INFORMATION
  Report Type: 
  Country: None (occurrence: None)
  Receive Date: 20111118
  Receipt Date: 20111110
  Transmission Date: 20120403
  Serious: No
  Sender: FDA-Public Use
  Company Number: US-BIOGENIDEC-2011BI043217

PATIENT
  Age: 45 Year
  Sex: Female

DRUGS (1)
  1. TYSABRI [Suspect]
     Indication: MULTIPLE SCLEROSIS
     Route: 042
     Dates: start: 20091130

REACTIONS (5)
  - POOR VENOUS ACCESS [None]
  - SKIN DISCOLOURATION [None]
  - PAIN IN EXTREMITY [None]
  - DYSPNOEA [None]
  - INFUSION SITE HAEMATOMA [None]
